FAERS Safety Report 6654362-5 (Version None)
Quarter: 2010Q1

REPORT INFORMATION
  Report Type: 
  Country: None (occurrence: None)
  Receive Date: 20100326
  Receipt Date: 20100315
  Transmission Date: 20100710
  Serious: Yes (Hospitalization, Other)
  Sender: FDA-Public Use
  Company Number: KR-PFIZER INC-2010032600

PATIENT
  Sex: Male

DRUGS (5)
  1. SUTENE [Suspect]
     Indication: RENAL CANCER STAGE IV
     Dosage: 50 MG, 1X/DAY, BEFORE A MEAL
     Route: 048
     Dates: start: 20100201, end: 20100301
  2. MOTILIUM ^JANSSEN^ [Concomitant]
     Indication: GASTROINTESTINAL DISORDER
     Dosage: 10 MG, 3X/DAY, AFTER MEALS
     Route: 048
     Dates: start: 20091201
  3. MAGMIL [Concomitant]
     Indication: CONSTIPATION
     Dosage: 500 MG, 3X/DAY, AFTER MEALS
     Route: 048
     Dates: start: 20091201
  4. PRITOR [Concomitant]
     Indication: HYPERTENSION
     Dosage: 40 MG, 1X/DAY, IN THE MORNING
     Route: 048
  5. AMARYL [Concomitant]
     Indication: DIABETES MELLITUS
     Dosage: 2 MG, 1X/DAY, IN THE MORNING
     Route: 048

REACTIONS (8)
  - BLISTER [None]
  - DECREASED APPETITE [None]
  - EPISTAXIS [None]
  - GAIT DISTURBANCE [None]
  - PLATELET COUNT DECREASED [None]
  - SKIN ULCER [None]
  - STOMATITIS [None]
  - YELLOW SKIN [None]
